FAERS Safety Report 14532225 (Version 1)
Quarter: 2018Q1

REPORT INFORMATION
  Report Type: Report from Study
  Country: IL (occurrence: IL)
  Receive Date: 20180214
  Receipt Date: 20180214
  Transmission Date: 20180509
  Serious: Yes (Hospitalization)
  Sender: FDA-Public Use
  Company Number: IL-MYLANLABS-2018M1009929

PATIENT
  Age: 69 Year
  Sex: Female

DRUGS (8)
  1. CLARITHROMYCIN. [Suspect]
     Active Substance: CLARITHROMYCIN
     Indication: HELICOBACTER INFECTION
     Dosage: 500 MG, UNK
     Route: 065
  2. AMOXICILLIN. [Concomitant]
     Active Substance: AMOXICILLIN
     Indication: HELICOBACTER INFECTION
     Dosage: 1 G, UNK
     Route: 065
  3. COLCHICINE. [Interacting]
     Active Substance: COLCHICINE
     Indication: FAMILIAL MEDITERRANEAN FEVER
     Dosage: 2 MG/DAY
     Route: 065
  4. AMOXICILLIN. [Concomitant]
     Active Substance: AMOXICILLIN
     Indication: GASTRIC INFECTION
  5. CLARITHROMYCIN. [Suspect]
     Active Substance: CLARITHROMYCIN
     Indication: GASTRIC INFECTION
  6. LEVOTHYROXINE. [Concomitant]
     Active Substance: LEVOTHYROXINE
     Indication: HYPOTHYROIDISM
     Dosage: UNK
     Route: 065
  7. OMEPRAZOLE. [Concomitant]
     Active Substance: OMEPRAZOLE
     Indication: HELICOBACTER INFECTION
     Dosage: 20 MG/DAY
     Route: 065
  8. OMEPRAZOLE. [Concomitant]
     Active Substance: OMEPRAZOLE
     Indication: GASTRIC INFECTION

REACTIONS (9)
  - Toxicity to various agents [Recovered/Resolved]
  - Abdominal pain [Recovered/Resolved]
  - Muscular weakness [Recovered/Resolved]
  - Peripheral sensory neuropathy [Recovered/Resolved]
  - Vomiting [Recovered/Resolved]
  - Asthenia [Recovered/Resolved]
  - Drug interaction [Recovered/Resolved]
  - Diarrhoea [Recovered/Resolved]
  - Peripheral motor neuropathy [Recovered/Resolved]
